FAERS Safety Report 16925975 (Version 4)
Quarter: 2020Q1

REPORT INFORMATION
  Report Type: Spontaneous
  Country: DE (occurrence: DE)
  Receive Date: 20191016
  Receipt Date: 20200127
  Transmission Date: 20200409
  Serious: Yes (Death, Other)
  Sender: FDA-Public Use
  Company Number: DE-ELI_LILLY_AND_COMPANY-DE201910007276

PATIENT
  Sex: Male

DRUGS (4)
  1. PEMBROLIZUMAB. [Suspect]
     Active Substance: PEMBROLIZUMAB
     Indication: LUNG NEOPLASM MALIGNANT
     Dosage: 2MG/KG BODY WEIGHT, CYCLICAL, TOTAL 17 CYCLES
     Route: 065
     Dates: start: 201704, end: 201804
  2. PEMETREXED. [Suspect]
     Active Substance: PEMETREXED
     Indication: LUNG NEOPLASM MALIGNANT
     Dosage: 500 MG/M2 IN TOTAL (5 CYCLES)
     Route: 065
     Dates: start: 201809, end: 201812
  3. DOCETAXEL. [Suspect]
     Active Substance: DOCETAXEL
     Indication: PRODUCT USED FOR UNKNOWN INDICATION
     Dosage: 75 MG/M2 D1 QW3, IN TOTAL 1 CYCLE
     Route: 065
     Dates: start: 201804, end: 201805
  4. NINTEDANIB [Suspect]
     Active Substance: NINTEDANIB
     Indication: LUNG NEOPLASM MALIGNANT
     Dosage: 400 MG, QD ( 200 MILLIGRAM, 1-0-1 (BID), IN TOTAL 1 CYCLE)
     Route: 065
     Dates: start: 201804, end: 201805

REACTIONS (2)
  - Malignant neoplasm progression [Fatal]
  - Gastrointestinal disorder [Fatal]

NARRATIVE: CASE EVENT DATE: 2018
